FAERS Safety Report 23644148 (Version 1)
Quarter: 2024Q1

REPORT INFORMATION
  Report Type: Spontaneous
  Country: US (occurrence: None)
  Receive Date: 20240318
  Receipt Date: 20240318
  Transmission Date: 20240409
  Serious: Yes (Hospitalization)
  Sender: FDA-Public Use
  Company Number: None

PATIENT
  Sex: Female

DRUGS (4)
  1. MYCOPHENOLATE MOFETIL [Suspect]
     Active Substance: MYCOPHENOLATE MOFETIL
     Indication: Renal transplant
     Dosage: FREQUENCY : TWICE A DAY;?
     Route: 048
     Dates: start: 202107
  2. TACROLIMUS [Concomitant]
     Active Substance: TACROLIMUS
  3. TYVASO DPI MAIN KIT PWD [Concomitant]
  4. ADEMPAS [Concomitant]

REACTIONS (2)
  - Hypotension [None]
  - Dyspnoea [None]
